FAERS Safety Report 6527881-X (Version None)
Quarter: 2009Q4

REPORT INFORMATION
  Report Type: 
  Country: None (occurrence: None)
  Receive Date: 20091231
  Receipt Date: 20091113
  Transmission Date: 20100525
  Serious: Yes (Other)
  Sender: FDA-Public Use
  Company Number: 1000011030

PATIENT
  Age: 57 Year
  Sex: Female
  Weight: 67.9 kg

DRUGS (9)
  1. ESCITALOPRAM OXALATE [Suspect]
     Indication: DEPRESSION
     Dosage: 20 MG (20 MG, 1 IN 1 D), ORAL
     Route: 048
     Dates: start: 20090823, end: 20091012
  2. ESCITALOPRAM OXALATE [Suspect]
     Indication: DISEASE RECURRENCE
     Dosage: 20 MG (20 MG, 1 IN 1 D), ORAL
     Route: 048
     Dates: start: 20090823, end: 20091012
  3. ESCITALOPRAM OXALATE [Suspect]
     Indication: DEPRESSION
     Dosage: 5 MG (5 MG, 1 IN 1 D), ORAL 10 MG (10MG, 1 IN 1 D), ORAL 15 MG (15 MG, 1 IN 1 D), ORAL
     Route: 048
     Dates: start: 20090206, end: 20090209
  4. ESCITALOPRAM OXALATE [Suspect]
     Indication: DISEASE RECURRENCE
     Dosage: 5 MG (5 MG, 1 IN 1 D), ORAL 10 MG (10MG, 1 IN 1 D), ORAL 15 MG (15 MG, 1 IN 1 D), ORAL
     Route: 048
     Dates: start: 20090206, end: 20090209
  5. ESCITALOPRAM OXALATE [Suspect]
     Indication: DEPRESSION
     Dosage: 5 MG (5 MG, 1 IN 1 D), ORAL 10 MG (10MG, 1 IN 1 D), ORAL 15 MG (15 MG, 1 IN 1 D), ORAL
     Route: 048
     Dates: start: 20090210, end: 20090331
  6. ESCITALOPRAM OXALATE [Suspect]
     Indication: DISEASE RECURRENCE
     Dosage: 5 MG (5 MG, 1 IN 1 D), ORAL 10 MG (10MG, 1 IN 1 D), ORAL 15 MG (15 MG, 1 IN 1 D), ORAL
     Route: 048
     Dates: start: 20090210, end: 20090331
  7. ESCITALOPRAM OXALATE [Suspect]
     Indication: DEPRESSION
     Dosage: 5 MG (5 MG, 1 IN 1 D), ORAL 10 MG (10MG, 1 IN 1 D), ORAL 15 MG (15 MG, 1 IN 1 D), ORAL
     Route: 048
     Dates: start: 20090401, end: 20090822
  8. ESCITALOPRAM OXALATE [Suspect]
     Indication: DISEASE RECURRENCE
     Dosage: 5 MG (5 MG, 1 IN 1 D), ORAL 10 MG (10MG, 1 IN 1 D), ORAL 15 MG (15 MG, 1 IN 1 D), ORAL
     Route: 048
     Dates: start: 20090401, end: 20090822
  9. ATOSIL [Concomitant]

REACTIONS (4)
  - ALANINE AMINOTRANSFERASE INCREASED [None]
  - GAMMA-GLUTAMYLTRANSFERASE INCREASED [None]
  - LIPASE INCREASED [None]
  - TRANSAMINASES INCREASED [None]
